FAERS Safety Report 5015062-0 (Version None)
Quarter: 2006Q2

REPORT INFORMATION
  Report Type: 
  Country: None (occurrence: None)
  Receive Date: 20060530
  Receipt Date: 20060512
  Transmission Date: 20061013
  Serious: Yes (Hospitalization)
  Sender: FDA-Public Use
  Company Number: 2006P1000306

PATIENT
  Age: 62 Year
  Sex: Male

DRUGS (4)
  1. RETEPLASE (RETEPLASE) [Suspect]
     Indication: THROMBOLYSIS
     Dosage: IV
     Dates: start: 20060413, end: 20060413
  2. HEPARIN [Suspect]
     Indication: THROMBOLYSIS
  3. ASPIRIN [Suspect]
     Indication: THROMBOLYSIS
     Dosage: 300 MG
     Dates: start: 20060413, end: 20060413
  4. CLOPIDOGREL (CLOPIDOGREL) [Suspect]

REACTIONS (4)
  - BLOOD PRESSURE INCREASED [None]
  - CEREBRAL HAEMORRHAGE [None]
  - DYSARTHRIA [None]
  - MYOCARDIAL INFARCTION [None]
